FAERS Safety Report 23326370 (Version 2)
Quarter: 2024Q1

REPORT INFORMATION
  Report Type: Report from Study
  Country: CA (occurrence: CA)
  Receive Date: 20231221
  Receipt Date: 20240102
  Transmission Date: 20240410
  Serious: Yes (Other)
  Sender: FDA-Public Use
  Company Number: CA-AstraZeneca-2023A287034

PATIENT
  Sex: Female
  Weight: 85 kg

DRUGS (1)
  1. ENHERTU [Suspect]
     Active Substance: FAM-TRASTUZUMAB DERUXTECAN-NXKI
     Indication: Breast cancer metastatic
     Dosage: 421 MG, ONCE EVERY 3 WK
     Route: 042
     Dates: start: 20231127

REACTIONS (5)
  - Swelling [Unknown]
  - Feeling hot [Unknown]
  - Erythema [Unknown]
  - Tenderness [Unknown]
  - Thrombosis [Recovering/Resolving]
